FAERS Safety Report 13226001 (Version 1)
Quarter: 2017Q1

REPORT INFORMATION
  Report Type: Report from Study
  Country: JP (occurrence: JP)
  Receive Date: 20170213
  Receipt Date: 20170213
  Transmission Date: 20170428
  Serious: Yes (Other)
  Sender: FDA-Public Use
  Company Number: JP-TEVA-739806ISR

PATIENT
  Age: 0 Day
  Sex: Male
  Weight: 2.48 kg

DRUGS (16)
  1. RABEPRAZOLE SODIUM. [Concomitant]
     Active Substance: RABEPRAZOLE SODIUM
     Dates: start: 20160405
  2. MAGNESIUM OXIDE. [Concomitant]
     Active Substance: MAGNESIUM OXIDE
     Dates: start: 20160831, end: 20161129
  3. METHYLPREDNISOLONE SODIUM SUCCINATE. [Concomitant]
     Active Substance: METHYLPREDNISOLONE SODIUM SUCCINATE
     Dates: start: 20160828, end: 20161208
  4. ALOSENN [Concomitant]
     Active Substance: SENNA LEAF
     Dates: end: 20161201
  5. SENNOSIDE [Concomitant]
     Active Substance: SENNOSIDES
     Dates: end: 20161201
  6. SOL-MELCORT [Concomitant]
     Active Substance: METHYLPREDNISOLONE SODIUM SUCCINATE
     Dates: start: 20160502, end: 20160504
  7. GLATIRAMER ACETATE. [Suspect]
     Active Substance: GLATIRAMER ACETATE
     Indication: PRODUCT USED FOR UNKNOWN INDICATION
     Dosage: 20 MILLIGRAM DAILY;
     Route: 064
     Dates: start: 20160325, end: 20160526
  8. SODIUM PICOSULFATE [Concomitant]
     Active Substance: SODIUM PICOSULFATE
     Dates: start: 20160506
  9. LOXOPROFEN NA [Concomitant]
     Active Substance: LOXOPROFEN SODIUM
     Dates: start: 20160507, end: 20161201
  10. NEXIUM [Concomitant]
     Active Substance: ESOMEPRAZOLE MAGNESIUM
     Dates: start: 20160903, end: 20161115
  11. PREDONINE [Concomitant]
     Active Substance: PREDNISOLONE
     Dates: start: 20160325, end: 20160405
  12. REBAMIPIDE [Concomitant]
     Active Substance: REBAMIPIDE
     Dates: start: 20160828, end: 20160830
  13. INDOMETACIN [Concomitant]
     Active Substance: INDOMETHACIN
     Dosage: TAPE (INCLUDING POULTICE)
     Dates: start: 20160507, end: 20161201
  14. CLOTIAZEPAM [Concomitant]
     Active Substance: CLOTIAZEPAM
     Dates: start: 20161019, end: 20161201
  15. RITODRINE HYDROCHLORIDE [Concomitant]
     Active Substance: RITODRINE HYDROCHLORIDE
     Dates: start: 20161019, end: 20161126
  16. GLATIRAMER ACETATE. [Suspect]
     Active Substance: GLATIRAMER ACETATE
     Dosage: 20 MILLIGRAM DAILY;
     Route: 064
     Dates: start: 20160615, end: 20161129

REACTIONS (1)
  - Low birth weight baby [Unknown]

NARRATIVE: CASE EVENT DATE: 20161201
